FAERS Safety Report 6479771-9 (Version None)
Quarter: 2009Q4

REPORT INFORMATION
  Report Type: 
  Country: None (occurrence: None)
  Receive Date: 20091208
  Receipt Date: 20091201
  Transmission Date: 20100525
  Serious: Yes (Other)
  Sender: FDA-Public Use
  Company Number: PHHY2009GR52681

PATIENT
  Age: 54 Year
  Sex: Male

DRUGS (1)
  1. EUCREAS [Suspect]
     Indication: TYPE 2 DIABETES MELLITUS
     Dosage: UNK
     Dates: start: 20081001, end: 20090101

REACTIONS (1)
  - PANCREATITIS [None]
